FAERS Safety Report 24174396 (Version 2)
Quarter: 2025Q2

REPORT INFORMATION
  Report Type: Spontaneous
  Country: US (occurrence: US)
  Receive Date: 20240805
  Receipt Date: 20250604
  Transmission Date: 20250717
  Serious: No
  Sender: SANOFI AVENTIS
  Company Number: US-SA-SAC20240731000347

PATIENT
  Age: 6 Year
  Sex: Male

DRUGS (2)
  1. DUPIXENT [Suspect]
     Active Substance: DUPILUMAB
     Indication: Dermatitis atopic
     Dosage: 300 MG, Q4W
     Route: 058
  2. DUPIXENT [Suspect]
     Active Substance: DUPILUMAB
     Indication: Asthma

REACTIONS (5)
  - Dermatitis atopic [Unknown]
  - Skin exfoliation [Unknown]
  - Rash [Unknown]
  - Dry skin [Unknown]
  - Skin fissures [Unknown]

NARRATIVE: CASE EVENT DATE: 20240701
